FAERS Safety Report 9189240 (Version 1)
Quarter: 2013Q1

REPORT INFORMATION
  Report Type: Spontaneous
  Country: GB (occurrence: None)
  Receive Date: 20130322
  Receipt Date: 20130322
  Transmission Date: 20140127
  Serious: Yes (Death, Hospitalization)
  Sender: FDA-Public Use
  Company Number: GB-ALKEM-000027

PATIENT
  Age: 70 Year
  Sex: Male

DRUGS (1)
  1. METFORMIN (METFORMIN) [Suspect]

REACTIONS (13)
  - Overdose [None]
  - Renal failure acute [None]
  - Suicide attempt [None]
  - Atrial fibrillation [None]
  - Pneumonia [None]
  - Vomiting [None]
  - Agitation [None]
  - Confusional state [None]
  - Abdominal pain [None]
  - Blood pressure increased [None]
  - Lactic acidosis [None]
  - Base excess [None]
  - Haemofiltration [None]
